FAERS Safety Report 16632330 (Version 1)
Quarter: 2019Q3

REPORT INFORMATION
  Report Type: Spontaneous
  Country: US (occurrence: US)
  Receive Date: 20190725
  Receipt Date: 20190725
  Transmission Date: 20191004
  Serious: No
  Sender: FDA-Public Use
  Company Number: US-ABBVIE-19S-163-2751266-00

PATIENT
  Age: 38 Year
  Sex: Female

DRUGS (3)
  1. SYNTHROID [Suspect]
     Active Substance: LEVOTHYROXINE SODIUM
     Indication: RADIOACTIVE IODINE THERAPY
     Route: 048
     Dates: start: 2011
  2. SYNTHROID [Suspect]
     Active Substance: LEVOTHYROXINE SODIUM
     Route: 048
     Dates: start: 20190329
  3. ATENOLOL. [Concomitant]
     Active Substance: ATENOLOL
     Indication: TACHYCARDIA

REACTIONS (9)
  - Paraesthesia [Not Recovered/Not Resolved]
  - Myalgia [Not Recovered/Not Resolved]
  - Product quality issue [Unknown]
  - Pain [Not Recovered/Not Resolved]
  - Nausea [Not Recovered/Not Resolved]
  - Blood thyroid stimulating hormone increased [Not Recovered/Not Resolved]
  - Heart rate increased [Not Recovered/Not Resolved]
  - Hyperhidrosis [Not Recovered/Not Resolved]
  - Asthenia [Not Recovered/Not Resolved]

NARRATIVE: CASE EVENT DATE: 20190330
